FAERS Safety Report 9439768 (Version 1)
Quarter: 2013Q3

REPORT INFORMATION
  Report Type: Spontaneous
  Country: BR (occurrence: BR)
  Receive Date: 20130805
  Receipt Date: 20130805
  Transmission Date: 20140515
  Serious: Yes (Hospitalization)
  Sender: FDA-Public Use
  Company Number: BR-AMGEN-BRASP2013054466

PATIENT
  Sex: Male

DRUGS (2)
  1. GRANULOKINE [Suspect]
     Indication: LEUKOPENIA
     Dosage: UNK
     Route: 065
  2. MABTHERA [Suspect]
     Indication: PRODUCT USED FOR UNKNOWN INDICATION
     Dosage: UNK
     Route: 042
     Dates: start: 20101026

REACTIONS (5)
  - Arthralgia [Unknown]
  - Oesophageal candidiasis [Unknown]
  - Renal failure [Unknown]
  - Leukopenia [Unknown]
  - Drug ineffective [Unknown]
